FAERS Safety Report 16036174 (Version 1)
Quarter: 2019Q1

REPORT INFORMATION
  Report Type: Spontaneous
  Country: US (occurrence: US)
  Receive Date: 20190305
  Receipt Date: 20190305
  Transmission Date: 20190418
  Serious: No
  Sender: FDA-Public Use
  Company Number: US-ALLERGAN-1815088US

PATIENT
  Sex: Female

DRUGS (3)
  1. ESTRACE [Suspect]
     Active Substance: ESTRADIOL
     Indication: URINE ABNORMALITY
  2. CITRACAL [Concomitant]
     Active Substance: CALCIUM CITRATE
     Indication: BOWEL MOVEMENT IRREGULARITY
     Dosage: UNK
     Route: 065
  3. ESTRACE [Suspect]
     Active Substance: ESTRADIOL
     Indication: VULVOVAGINAL DRYNESS
     Dosage: 0.5 G, UNK
     Route: 067
     Dates: start: 201803

REACTIONS (4)
  - Intentional device misuse [Unknown]
  - Off label use [Unknown]
  - Drug ineffective [Unknown]
  - Product prescribing error [Unknown]
